FAERS Safety Report 21815576 (Version 1)
Quarter: 2023Q1

REPORT INFORMATION
  Report Type: Spontaneous
  Country: US (occurrence: US)
  Receive Date: 20230104
  Receipt Date: 20230104
  Transmission Date: 20230417
  Serious: Yes (Death, Hospitalization, Other)
  Sender: FDA-Public Use
  Company Number: US-AMGEN-USASP2022227287

PATIENT

DRUGS (14)
  1. TRASTUZUMAB [Suspect]
     Active Substance: TRASTUZUMAB
     Indication: Neoplasm malignant
     Dosage: UNK
     Route: 065
  2. BEVACIZUMAB [Suspect]
     Active Substance: BEVACIZUMAB
     Indication: Neoplasm malignant
     Dosage: UNK
     Route: 065
  3. BLINATUMOMAB [Suspect]
     Active Substance: BLINATUMOMAB
     Indication: Neoplasm malignant
     Dosage: UNK
     Route: 065
  4. LANREOTIDE [Concomitant]
     Active Substance: LANREOTIDE
     Indication: Neoplasm malignant
     Dosage: UNK
  5. IBRUTINIB [Concomitant]
     Active Substance: IBRUTINIB
     Indication: Neoplasm malignant
     Dosage: UNK
  6. REVLIMID [Concomitant]
     Active Substance: LENALIDOMIDE
     Indication: Neoplasm malignant
     Dosage: UNK
  7. PALBOCICLIB [Concomitant]
     Active Substance: PALBOCICLIB
     Indication: Neoplasm malignant
     Dosage: UNK
  8. ABIRATERONE [Concomitant]
     Active Substance: ABIRATERONE
     Indication: Neoplasm malignant
     Dosage: UNK
  9. SUNITINIB [Concomitant]
     Active Substance: SUNITINIB
     Indication: Neoplasm malignant
     Dosage: UNK
  10. DABRAFENIB [Concomitant]
     Active Substance: DABRAFENIB
     Indication: Neoplasm malignant
     Dosage: UNK
  11. TRAMETINIB [Concomitant]
     Active Substance: TRAMETINIB
     Indication: Neoplasm malignant
     Dosage: UNK
  12. IXAZOMIB [Concomitant]
     Active Substance: IXAZOMIB
     Indication: Neoplasm malignant
     Dosage: UNK
  13. DASATINIB [Concomitant]
     Active Substance: DASATINIB
     Indication: Neoplasm malignant
     Dosage: UNK
  14. VENETOCLAX [Concomitant]
     Active Substance: VENETOCLAX
     Indication: Neoplasm malignant
     Dosage: UNK

REACTIONS (4)
  - Death [Fatal]
  - COVID-19 [Unknown]
  - Chronic obstructive pulmonary disease [Unknown]
  - Emphysema [Unknown]
